FAERS Safety Report 25130063 (Version 1)
Quarter: 2025Q1

REPORT INFORMATION
  Report Type: Spontaneous
  Country: US (occurrence: US)
  Receive Date: 20250327
  Receipt Date: 20250327
  Transmission Date: 20250409
  Serious: No
  Sender: BLUEPRINT MEDICINES
  Company Number: US-Blueprint Medicines Corporation-2025-AER-00563

PATIENT
  Age: 66 Year
  Sex: Male

DRUGS (1)
  1. AYVAKIT [Suspect]
     Active Substance: AVAPRITINIB
     Indication: Mastocytoma
     Dosage: 200MG DAILY
     Route: 065
     Dates: start: 20230503

REACTIONS (2)
  - Epistaxis [Unknown]
  - Pain [Unknown]
